FAERS Safety Report 20422740 (Version 1)
Quarter: 2022Q1

REPORT INFORMATION
  Report Type: Spontaneous
  Country: US (occurrence: US)
  Receive Date: 20220203
  Receipt Date: 20220203
  Transmission Date: 20220424
  Serious: Yes (Other)
  Sender: FDA-Public Use
  Company Number: US-PFIZER INC-202200149635

PATIENT
  Sex: Female

DRUGS (1)
  1. SERTRALINE HYDROCHLORIDE [Suspect]
     Active Substance: SERTRALINE HYDROCHLORIDE
     Dosage: 100 MG, 3X/DAY

REACTIONS (3)
  - Choking [Unknown]
  - Oropharyngeal discomfort [Unknown]
  - Overdose [Unknown]
